FAERS Safety Report 9253093 (Version 2)
Quarter: 2013Q2

REPORT INFORMATION
  Report Type: Spontaneous
  Country: US (occurrence: US)
  Receive Date: 20130424
  Receipt Date: 20130501
  Transmission Date: 20140414
  Serious: No
  Sender: FDA-Public Use
  Company Number: US-PFIZER INC-2013127319

PATIENT
  Sex: Female

DRUGS (1)
  1. LYRICA [Suspect]
     Dosage: 75 MG

REACTIONS (4)
  - Anxiety [Unknown]
  - Pain [Unknown]
  - Withdrawal syndrome [Unknown]
  - Wrong technique in drug usage process [Unknown]
